FAERS Safety Report 19948422 (Version 2)
Quarter: 2021Q4

REPORT INFORMATION
  Report Type: Spontaneous
  Country: US (occurrence: US)
  Receive Date: 20211013
  Receipt Date: 20211014
  Transmission Date: 20220303
  Serious: Yes (Hospitalization)
  Sender: FDA-Public Use
  Company Number: US-JNJFOC-20210760485

PATIENT
  Age: 51 Year
  Sex: Male
  Weight: 118.04 kg

DRUGS (3)
  1. JANSSEN COVID-19 VACCINE [Suspect]
     Active Substance: AD26.COV2.S
     Indication: Immunisation
     Dosage: VACCINATED ON LEFT ARM.
     Route: 065
     Dates: start: 20210317, end: 20210317
  2. XARELTO [Suspect]
     Active Substance: RIVAROXABAN
     Indication: Product used for unknown indication
     Route: 065
  3. CELEBREX [Concomitant]
     Active Substance: CELECOXIB
     Indication: Osteoarthritis
     Dosage: DISCONTINUED BECAUSE OF A HIGH RISK OF BLEEDING IF TAKEN WITH ELIQUIS FOR SOME DAYS.
     Route: 065

REACTIONS (21)
  - Pulmonary embolism [Recovered/Resolved with Sequelae]
  - Thrombosis [Unknown]
  - Head discomfort [Not Recovered/Not Resolved]
  - Peripheral swelling [Recovered/Resolved with Sequelae]
  - Neck pain [Not Recovered/Not Resolved]
  - Feeling abnormal [Not Recovered/Not Resolved]
  - Eye disorder [Unknown]
  - Depression [Unknown]
  - Hyperhidrosis [Not Recovered/Not Resolved]
  - Suspected COVID-19 [Not Recovered/Not Resolved]
  - Eating disorder [Recovered/Resolved]
  - Cardiac stress test [Not Recovered/Not Resolved]
  - Pulmonary function test [Not Recovered/Not Resolved]
  - Dyspnoea [Recovering/Resolving]
  - Insomnia [Recovered/Resolved]
  - Computerised tomogram [Not Recovered/Not Resolved]
  - Vertigo [Not Recovered/Not Resolved]
  - Pain [Recovering/Resolving]
  - Discomfort [Recovered/Resolved]
  - Arthralgia [Not Recovered/Not Resolved]
  - Pain in extremity [Unknown]

NARRATIVE: CASE EVENT DATE: 20210317
